FAERS Safety Report 10023625 (Version 1)
Quarter: 2014Q1

REPORT INFORMATION
  Report Type: Spontaneous
  Country: US (occurrence: US)
  Receive Date: 20140320
  Receipt Date: 20140320
  Transmission Date: 20141002
  Serious: Yes (Hospitalization)
  Sender: FDA-Public Use
  Company Number: US-JNJFOC-20140308408

PATIENT
  Sex: Male

DRUGS (1)
  1. RISPERDAL [Suspect]
     Indication: PRODUCT USED FOR UNKNOWN INDICATION
     Dosage: AT THE AGE OF 21 YEARS
     Route: 048
     Dates: start: 2006

REACTIONS (3)
  - Myocardial infarction [Unknown]
  - Pulmonary thrombosis [Unknown]
  - Breast pain [Unknown]
